FAERS Safety Report 4903417-1 (Version None)
Quarter: 2006Q1

REPORT INFORMATION
  Report Type: 
  Country: None (occurrence: None)
  Receive Date: 20060203
  Receipt Date: 20060117
  Transmission Date: 20060701
  Serious: Yes (Hospitalization)
  Sender: FDA-Public Use
  Company Number: GBR-2006-0002084

PATIENT
  Age: 66 Year
  Sex: Male

DRUGS (6)
  1. OXYCONTIN [Suspect]
     Dosage: 120 MG, BID
  2. OXYCODONE HCL [Suspect]
     Dosage: 40 MG, PRN
  3. GABAPENTIN [Concomitant]
  4. CELECOXIB (CELECOXIB) [Concomitant]
  5. VENLAFAXINE HCL [Concomitant]
  6. ACETAMINOPHEN [Concomitant]

REACTIONS (7)
  - BACK PAIN [None]
  - FAECAL INCONTINENCE [None]
  - METASTASES TO BONE [None]
  - NEURALGIA [None]
  - OSTEONECROSIS [None]
  - PERINEAL PAIN [None]
  - PROSTATE CANCER [None]
